FAERS Safety Report 21100299 (Version 1)
Quarter: 2022Q3

REPORT INFORMATION
  Report Type: Spontaneous
  Country: US (occurrence: US)
  Receive Date: 20220719
  Receipt Date: 20220719
  Transmission Date: 20221027
  Serious: Yes (Other)
  Sender: FDA-Public Use
  Company Number: US-INSUD PHARMA-2207US02821

PATIENT

DRUGS (3)
  1. TESTOSTERONE [Suspect]
     Active Substance: TESTOSTERONE
     Indication: Transgender hormonal therapy
     Dosage: UNKNOWN
     Route: 065
  2. TESTOSTERONE [Suspect]
     Active Substance: TESTOSTERONE
     Dosage: 100 MG BIWEEKLY
     Route: 030
  3. TESTOSTERONE [Suspect]
     Active Substance: TESTOSTERONE
     Dosage: INCREASED TO 150 MG BIWEEKLY AFTER 18 MONTHS
     Route: 030

REACTIONS (8)
  - Idiopathic intracranial hypertension [Recovered/Resolved]
  - Headache [Recovered/Resolved]
  - Visual impairment [Recovered/Resolved]
  - Tinnitus [Recovered/Resolved]
  - Visual field defect [Recovered/Resolved]
  - Papilloedema [Recovered/Resolved]
  - Retinal disorder [Recovered/Resolved]
  - Disease recurrence [Recovered/Resolved]
